FAERS Safety Report 11791237 (Version 1)
Quarter: 2015Q4

REPORT INFORMATION
  Report Type: Spontaneous
  Country: US (occurrence: US)
  Receive Date: 20151201
  Receipt Date: 20151201
  Transmission Date: 20160305
  Serious: No
  Sender: FDA-Public Use
  Company Number: US-WARNER CHILCOTT, LLC-1044867

PATIENT
  Age: 39 Year
  Sex: Female

DRUGS (3)
  1. LO LOESTRIN FE [Suspect]
     Active Substance: ETHINYL ESTRADIOL\NORETHINDRONE ACETATE
     Indication: MENORRHAGIA
     Route: 048
     Dates: start: 20141117
  2. MULTIVIT [Concomitant]
     Active Substance: VITAMINS
  3. VITAMIN C [Concomitant]
     Active Substance: ASCORBIC ACID

REACTIONS (3)
  - Abdominal distension [Unknown]
  - Fatigue [Recovered/Resolved]
  - Metrorrhagia [Not Recovered/Not Resolved]

NARRATIVE: CASE EVENT DATE: 201411
